FAERS Safety Report 25077690 (Version 2)
Quarter: 2025Q1

REPORT INFORMATION
  Report Type: Report from Study
  Country: US (occurrence: US)
  Receive Date: 20250314
  Receipt Date: 20250325
  Transmission Date: 20250409
  Serious: Yes (Life-Threatening, Hospitalization, Other)
  Sender: CSL BEHRING
  Company Number: US-BEH-2024187008

PATIENT
  Age: 39 Year
  Sex: Female
  Weight: 53 kg

DRUGS (3)
  1. HIZENTRA [Suspect]
     Active Substance: HUMAN IMMUNOGLOBULIN G
     Indication: Immunodeficiency common variable
     Dosage: 20 G, BIW (PRODUCT STRENGTH: 10)
     Route: 058
  2. HIZENTRA [Suspect]
     Active Substance: HUMAN IMMUNOGLOBULIN G
     Route: 065
  3. HIZENTRA [Suspect]
     Active Substance: HUMAN IMMUNOGLOBULIN G
     Route: 065

REACTIONS (13)
  - Breast cancer [Unknown]
  - Mastectomy [Unknown]
  - Breast reconstruction [Unknown]
  - Sepsis [Unknown]
  - Neoplasm malignant [Not Recovered/Not Resolved]
  - Pain [Not Recovered/Not Resolved]
  - Ear infection [Not Recovered/Not Resolved]
  - Mastectomy [Unknown]
  - Therapy interrupted [Not Recovered/Not Resolved]
  - Intentional product use issue [Unknown]
  - Inability to afford medication [Unknown]
  - Adverse event [Unknown]
  - Inability to afford medication [Unknown]

NARRATIVE: CASE EVENT DATE: 20230901
